FAERS Safety Report 5372446-9 (Version None)
Quarter: 2007Q2

REPORT INFORMATION
  Report Type: 
  Country: None (occurrence: None)
  Receive Date: 20070625
  Receipt Date: 20070614
  Transmission Date: 20071010
  Serious: Yes (Hospitalization)
  Sender: FDA-Public Use
  Company Number: 1-14984456/MED 07116

PATIENT
  Sex: Female

DRUGS (6)
  1. ***SULFAMETHOXAZOLE/TRIMETHOPRIM (STRENGTH, MFR UNKNOWN)*** [Suspect]
     Indication: LEPTOSPIROSIS
     Dosage: ORAL
     Route: 048
  2. ***SULFAMETHOXAZOLE/TRIMETHOPRIM (STRENGTH, MFR UNKNOWN)*** [Suspect]
     Indication: SCRUB TYPHUS
     Dosage: ORAL
     Route: 048
  3. CEFTAZIDIME [Suspect]
     Indication: LEPTOSPIROSIS
     Dosage: ORAL
     Route: 048
  4. CEFTAZIDIME [Suspect]
     Indication: SCRUB TYPHUS
     Dosage: ORAL
     Route: 048
  5. DOXYCYCLINE [Suspect]
     Indication: LEPTOSPIROSIS
     Dosage: 7-DAY COURSE OF THERAPY
  6. DOXYCYCLINE [Suspect]
     Indication: SCRUB TYPHUS
     Dosage: 7-DAY COURSE OF THERAPY

REACTIONS (8)
  - CHOLESTASIS [None]
  - DRUG HYPERSENSITIVITY [None]
  - HEPATOMEGALY [None]
  - JAUNDICE [None]
  - ORAL INTAKE REDUCED [None]
  - SYMBLEPHARON [None]
  - TOXIC EPIDERMAL NECROLYSIS [None]
  - VANISHING BILE DUCT SYNDROME [None]
